FAERS Safety Report 22250302 (Version 2)
Quarter: 2023Q2

REPORT INFORMATION
  Report Type: Spontaneous
  Country: ES (occurrence: ES)
  Receive Date: 20230425
  Receipt Date: 20230428
  Transmission Date: 20230721
  Serious: Yes (Hospitalization, Other)
  Sender: FDA-Public Use
  Company Number: ES-GLAXOSMITHKLINE-ES2023EME057866

PATIENT

DRUGS (1)
  1. DOSTARLIMAB [Suspect]
     Active Substance: DOSTARLIMAB
     Indication: Endometrial adenocarcinoma
     Dosage: UNK
     Dates: start: 2022

REACTIONS (4)
  - Urinary tract stoma complication [Unknown]
  - Transaminases increased [Unknown]
  - Rash [Unknown]
  - Therapeutic response unexpected [Unknown]
